FAERS Safety Report 10215181 (Version 1)
Quarter: 2014Q2

REPORT INFORMATION
  Report Type: Spontaneous
  Country: GB (occurrence: GB)
  Receive Date: 20140603
  Receipt Date: 20140603
  Transmission Date: 20141212
  Serious: Yes (Other)
  Sender: FDA-Public Use
  Company Number: PHHY2014GB065352

PATIENT
  Age: 58 Year
  Sex: Male
  Weight: 70 kg

DRUGS (3)
  1. INDAPAMIDE [Suspect]
     Dates: start: 20131007
  2. THIAMINE [Concomitant]
     Dates: start: 20131007, end: 20131104
  3. VITAMIN B COMPOUND [Concomitant]
     Dates: start: 20131007, end: 20131104

REACTIONS (3)
  - Confusional state [Unknown]
  - Hallucination [Unknown]
  - Hyponatraemia [Recovering/Resolving]
